FAERS Safety Report 7594668-9 (Version None)
Quarter: 2011Q3

REPORT INFORMATION
  Report Type: 
  Country: None (occurrence: None)
  Receive Date: 20110707
  Receipt Date: 20110629
  Transmission Date: 20111222
  Serious: Yes (Hospitalization, Other)
  Sender: FDA-Public Use
  Company Number: GB-TEVA-289349ISR

PATIENT
  Age: 39 Year
  Sex: Male

DRUGS (2)
  1. CLOZAPINE [Suspect]
     Indication: SCHIZOPHRENIA
     Route: 048
     Dates: start: 20080514
  2. HALOPERIDOL [Suspect]
     Dates: start: 20110503

REACTIONS (12)
  - TACHYCARDIA [None]
  - PERONEAL NERVE PALSY [None]
  - BODY TEMPERATURE INCREASED [None]
  - OEDEMA PERIPHERAL [None]
  - INJURY [None]
  - BLOOD CREATINE PHOSPHOKINASE INCREASED [None]
  - PYREXIA [None]
  - HYPERTENSION [None]
  - ASPARTATE AMINOTRANSFERASE INCREASED [None]
  - DIABETIC NEUROPATHY [None]
  - DIABETES MELLITUS [None]
  - BLOOD GLUCOSE INCREASED [None]
